FAERS Safety Report 15289466 (Version 1)
Quarter: 2018Q3

REPORT INFORMATION
  Report Type: Spontaneous
  Country: US (occurrence: US)
  Receive Date: 20180803
  Receipt Date: 20180803
  Transmission Date: 20181010
  Serious: Yes (Other)
  Sender: FDA-Public Use
  Company Number: None

PATIENT
  Age: 52 Year
  Sex: Male
  Weight: 132.75 kg

DRUGS (1)
  1. VALSARTAN/HCTZ 160MG/12.5MG 90CT NDC#43547?312?09 [Suspect]
     Active Substance: HYDROCHLOROTHIAZIDE\VALSARTAN
     Indication: HYPERTENSION
     Dosage: ?          QUANTITY:1 TABLET(S);?
     Route: 048
     Dates: start: 20100101, end: 20180802

REACTIONS (3)
  - Balance disorder [None]
  - Vertigo [None]
  - Syncope [None]

NARRATIVE: CASE EVENT DATE: 20180723
